FAERS Safety Report 5831685-0 (Version None)
Quarter: 2008Q3

REPORT INFORMATION
  Report Type: 
  Country: None (occurrence: None)
  Receive Date: 20080730
  Receipt Date: 20080716
  Transmission Date: 20090109
  Serious: Yes (Other)
  Sender: FDA-Public Use
  Company Number: 2008AL008361

PATIENT
  Age: 52 Year
  Sex: Male
  Weight: 158.759 kg

DRUGS (1)
  1. DIGOXIN [Suspect]
     Indication: CARDIAC FAILURE CONGESTIVE
     Dosage: 0.25MG, DAILY, PO
     Route: 048
     Dates: start: 19940401, end: 20080516

REACTIONS (7)
  - BLOOD PRESSURE DECREASED [None]
  - FATIGUE [None]
  - GASTRIC PH DECREASED [None]
  - HEART RATE DECREASED [None]
  - INSOMNIA [None]
  - PAIN IN EXTREMITY [None]
  - RASH [None]
